FAERS Safety Report 8210889-6 (Version None)
Quarter: 2012Q1

REPORT INFORMATION
  Report Type: 
  Country: None (occurrence: None)
  Receive Date: 20120315
  Receipt Date: 20120301
  Transmission Date: 20120608
  Serious: Yes (Hospitalization, Other)
  Sender: FDA-Public Use
  Company Number: FR-CELGENEUS-056-21880-11123328

PATIENT
  Sex: Male
  Weight: 50 kg

DRUGS (13)
  1. REVLIMID [Suspect]
     Indication: B-CELL LYMPHOMA
     Dosage: 25 MILLIGRAM
     Route: 048
     Dates: start: 20111117, end: 20111130
  2. CYCLOPHOSPHAMIDE [Suspect]
     Indication: B-CELL LYMPHOMA
     Dosage: 1312.5 MILLIGRAM
     Route: 041
     Dates: start: 20111117
  3. TRAMADOL HCL [Concomitant]
     Indication: PAIN
     Route: 065
     Dates: start: 20111111
  4. RITUXIMAB [Suspect]
     Indication: B-CELL LYMPHOMA
     Dosage: 655 MILLIGRAM
     Route: 041
     Dates: start: 20111117
  5. DOXORUBICIN HCL [Suspect]
     Dosage: 88 MILLIGRAM
     Route: 041
     Dates: start: 20120207
  6. CYCLOPHOSPHAMIDE [Suspect]
     Dosage: 1312.5 MILLIGRAM
     Route: 041
     Dates: start: 20120207
  7. VINCRISTINE [Suspect]
     Indication: B-CELL LYMPHOMA
     Dosage: 2 MILLIGRAM
     Route: 041
     Dates: start: 20111117
  8. REVLIMID [Suspect]
     Dosage: 25 MILLIGRAM
     Route: 048
     Dates: start: 20111201, end: 20111223
  9. PREDNISOLONE [Suspect]
     Indication: B-CELL LYMPHOMA
     Dosage: 70 MILLIGRAM
     Route: 065
     Dates: start: 20111117
  10. DOXORUBICIN HCL [Suspect]
     Indication: B-CELL LYMPHOMA
     Dosage: 88 MILLIGRAM
     Route: 041
     Dates: start: 20111117
  11. REVLIMID [Suspect]
     Dosage: 25 MILLIGRAM
     Route: 048
     Dates: end: 20111208
  12. RITUXIMAB [Suspect]
     Dosage: 655 MILLIGRAM
     Route: 041
     Dates: start: 20120207
  13. PREDNISOLONE [Suspect]
     Dosage: 70 MILLIGRAM
     Route: 065
     Dates: start: 20120207

REACTIONS (6)
  - RENAL VEIN THROMBOSIS [None]
  - GENERAL PHYSICAL HEALTH DETERIORATION [None]
  - LUNG INFECTION [None]
  - WEIGHT DECREASED [None]
  - INFECTION [None]
  - FOOD INTOLERANCE [None]
